FAERS Safety Report 10044721 (Version 1)
Quarter: 2014Q1

REPORT INFORMATION
  Report Type: Spontaneous
  Country: AU (occurrence: AU)
  Receive Date: 20140328
  Receipt Date: 20140328
  Transmission Date: 20141002
  Serious: Yes (Disabling)
  Sender: FDA-Public Use
  Company Number: AU-SHIRE-AU201400731

PATIENT
  Sex: Male
  Weight: 95 kg

DRUGS (1)
  1. VPRIV [Suspect]
     Indication: GAUCHER^S DISEASE
     Dosage: 1600 IU, UNKNOWN
     Route: 041
     Dates: end: 20131030

REACTIONS (4)
  - Cerebrovascular accident [Not Recovered/Not Resolved]
  - Immobile [Not Recovered/Not Resolved]
  - Bedridden [Not Recovered/Not Resolved]
  - General physical health deterioration [Not Recovered/Not Resolved]
